FAERS Safety Report 9465993 (Version 1)
Quarter: 2013Q3

REPORT INFORMATION
  Report Type: Spontaneous
  Country: PL (occurrence: None)
  Receive Date: 20130814
  Receipt Date: 20130814
  Transmission Date: 20140515
  Serious: Yes (Life-Threatening)
  Sender: FDA-Public Use
  Company Number: 2013P1017357

PATIENT
  Age: 63 Year
  Sex: Female

DRUGS (1)
  1. EPINEPHRINE [Suspect]
     Route: 030

REACTIONS (1)
  - Myocardial infarction [None]
